FAERS Safety Report 9358919 (Version 1)
Quarter: 2013Q2

REPORT INFORMATION
  Report Type: Spontaneous
  Country: MX (occurrence: MX)
  Receive Date: 20130620
  Receipt Date: 20130620
  Transmission Date: 20140414
  Serious: Yes (Death, Other)
  Sender: FDA-Public Use
  Company Number: PHHY2013MX062238

PATIENT
  Age: 8 Month
  Sex: Male

DRUGS (6)
  1. VALPROIC ACID [Suspect]
     Indication: CONVULSION
     Dosage: UNK UKN, UNK
  2. CLONAZEPAM [Suspect]
     Indication: CONVULSION
     Dosage: UNK UKN, UNK
  3. LEVETIRACETAM [Suspect]
     Indication: CONVULSION
     Dosage: UNK UKN, UNK
  4. PREGABALIN [Suspect]
     Indication: CONVULSION
     Dosage: UNK UKN, UNK
  5. VIGABATRIN [Suspect]
     Indication: CONVULSION
     Dosage: UNK UKN, UNK
  6. POTASSIUM BROMIDE [Suspect]
     Indication: CONVULSION
     Dosage: UNK UKN, UNK

REACTIONS (11)
  - Metabolic acidosis [Fatal]
  - Status epilepticus [Fatal]
  - Pneumonia [Unknown]
  - Complex partial seizures [Unknown]
  - Salivary hypersecretion [Unknown]
  - Crying [Unknown]
  - Irritability [Unknown]
  - Partial seizures [Unknown]
  - Pallor [Unknown]
  - Eye movement disorder [Unknown]
  - Drug ineffective [Unknown]
